FAERS Safety Report 23317164 (Version 1)
Quarter: 2023Q4

REPORT INFORMATION
  Report Type: Spontaneous
  Country: US (occurrence: None)
  Receive Date: 20231219
  Receipt Date: 20231219
  Transmission Date: 20240110
  Serious: No
  Sender: FDA-Public Use
  Company Number: US-ROCHE-3428026

PATIENT
  Age: 19 Year
  Sex: Male
  Weight: 92 kg

DRUGS (2)
  1. HEMLIBRA [Suspect]
     Active Substance: EMICIZUMAB-KXWH
     Indication: Factor VIII deficiency
     Dosage: ONGOING
     Route: 058
     Dates: start: 20210120
  2. HEMLIBRA [Suspect]
     Active Substance: EMICIZUMAB-KXWH
     Dosage: ONGOING
     Route: 058
     Dates: start: 202101

REACTIONS (4)
  - Loss of consciousness [Recovered/Resolved with Sequelae]
  - Burning sensation [Unknown]
  - Head injury [Recovered/Resolved with Sequelae]
  - Injection site pain [Recovered/Resolved with Sequelae]

NARRATIVE: CASE EVENT DATE: 20230920
